FAERS Safety Report 4501206-3 (Version None)
Quarter: 2004Q3

REPORT INFORMATION
  Report Type: 
  Country: None (occurrence: None)
  Receive Date: 20040927
  Receipt Date: 20040813
  Transmission Date: 20050211
  Serious: No
  Sender: FDA-Public Use
  Company Number: USA040875539

PATIENT
  Age: 55 Year
  Sex: Female

DRUGS (4)
  1. STRATTERA [Suspect]
     Indication: ATTENTION DEFICIT/HYPERACTIVITY DISORDER
     Dosage: 40 MG DAY
     Dates: start: 20040812
  2. CELEXA [Concomitant]
  3. XANAX (ALPRAZOLAM DUM) [Concomitant]
  4. MORPHINE SULFATE [Concomitant]

REACTIONS (3)
  - CHILLS [None]
  - HOT FLUSH [None]
  - HYPERHIDROSIS [None]
